FAERS Safety Report 15116634 (Version 1)
Quarter: 2018Q3

REPORT INFORMATION
  Report Type: Spontaneous
  Country: JP (occurrence: JP)
  Receive Date: 20180706
  Receipt Date: 20180706
  Transmission Date: 20181010
  Serious: Yes (Hospitalization, Other)
  Sender: FDA-Public Use
  Company Number: JP-PFM-2018-07410

PATIENT

DRUGS (4)
  1. PROPRANOLOL [Suspect]
     Active Substance: PROPRANOLOL HYDROCHLORIDE
     Indication: HAEMANGIOMA
     Dosage: 8 MG(0.5 MG/KG/DAY)
     Route: 048
  2. PROPRANOLOL [Suspect]
     Active Substance: PROPRANOLOL HYDROCHLORIDE
     Dosage: 25 MG(1.6 MG/KG/DAY)
     Route: 048
  3. PROPRANOLOL [Suspect]
     Active Substance: PROPRANOLOL HYDROCHLORIDE
     Dosage: (10 ? 15 MG (0.5 ? 0.65 MG/KG/DAY))
     Route: 048
  4. PROPRANOLOL [Suspect]
     Active Substance: PROPRANOLOL HYDROCHLORIDE
     Dosage: 55 MG(3.0 MG/KG/DAY)
     Route: 048

REACTIONS (5)
  - Drug administered to patient of inappropriate age [Unknown]
  - Off label use [Unknown]
  - Dysuria [Recovered/Resolved]
  - Urinary retention [Recovered/Resolved]
  - Product use issue [Unknown]
